FAERS Safety Report 21560490 (Version 5)
Quarter: 2022Q4

REPORT INFORMATION
  Report Type: Spontaneous
  Country: US (occurrence: US)
  Receive Date: 20221107
  Receipt Date: 20221219
  Transmission Date: 20230113
  Serious: No
  Sender: FDA-Public Use
  Company Number: US-PFIZER INC-202201243426

PATIENT
  Age: 10 Year
  Sex: Female
  Weight: 36.28 kg

DRUGS (1)
  1. GENOTROPIN [Suspect]
     Active Substance: SOMATROPIN
     Indication: Growth disorder
     Dosage: 7 MG, DAILY
     Dates: start: 2018

REACTIONS (4)
  - Poor quality device used [Unknown]
  - Device mechanical issue [Unknown]
  - Device power source issue [Unknown]
  - Device material issue [Unknown]

NARRATIVE: CASE EVENT DATE: 20220701
